FAERS Safety Report 6268136-0 (Version None)
Quarter: 2009Q3

REPORT INFORMATION
  Report Type: 
  Country: None (occurrence: None)
  Receive Date: 20090715
  Receipt Date: 20090709
  Transmission Date: 20100115
  Serious: Yes (Hospitalization)
  Sender: FDA-Public Use
  Company Number: GB-BIOGENIDEC-2009BI006255

PATIENT
  Age: 50 Year
  Sex: Female

DRUGS (30)
  1. AVONEX [Suspect]
     Indication: MULTIPLE SCLEROSIS
     Route: 030
     Dates: start: 20021001
  2. AVONEX [Suspect]
     Route: 030
  3. TRAMADOL HCL [Concomitant]
     Route: 048
  4. OMEPRAZOLE [Concomitant]
     Route: 048
  5. GABAPENTIN [Concomitant]
     Route: 048
  6. NULYTELY [Concomitant]
     Route: 048
  7. PARACETAMOL [Concomitant]
     Route: 048
  8. FLU VACCINE [Concomitant]
     Indication: PROPHYLAXIS
     Dates: start: 20041004, end: 20041004
  9. FLU VACCINE [Concomitant]
     Dates: start: 20071003, end: 20071003
  10. FLU VACCINE [Concomitant]
     Dates: start: 20080924, end: 20080924
  11. FLU VACCINE [Concomitant]
     Dates: start: 20040123, end: 20040123
  12. FLU VACCINE [Concomitant]
     Dates: start: 20031107, end: 20031107
  13. FLU VACCINE [Concomitant]
     Dates: start: 20021022, end: 20021022
  14. TYPHOID VACCINE [Concomitant]
     Indication: PROPHYLAXIS
     Dates: start: 20041013, end: 20041013
  15. HEPATITIS A  VACCINE [Concomitant]
     Indication: PROPHYLAXIS
     Dates: start: 20041013, end: 20041013
  16. EPAXAL [Concomitant]
     Indication: PROPHYLAXIS
     Route: 030
     Dates: start: 20080709, end: 20080709
  17. ALBUTEROL [Concomitant]
     Dates: start: 20021001
  18. DALACIN [Concomitant]
     Dates: start: 20030701
  19. CANESTAN [Concomitant]
     Dates: start: 20040201
  20. PREDNISOLONE [Concomitant]
  21. POTASSIUM CITRATE [Concomitant]
     Dates: start: 20060201
  22. CEPHALEXIN [Concomitant]
     Indication: PROPHYLAXIS
     Dates: start: 20040601
  23. CEPHALEXIN [Concomitant]
     Dates: start: 20071107
  24. NITROFURANTOIN [Concomitant]
     Dates: start: 20050101
  25. NITROFURANTOIN [Concomitant]
     Dates: start: 20050805
  26. CEFACLOR [Concomitant]
     Dates: start: 20061201
  27. CODYDRAMOL [Concomitant]
     Dates: start: 20061201
  28. DICLOFENAC DIETHYLAMMONIUM [Concomitant]
  29. AMANTADINE HCL [Concomitant]
     Indication: FATIGUE
  30. DIHYDROCODEINE BITARTRATE INJ [Concomitant]

REACTIONS (9)
  - ANXIETY [None]
  - DEPRESSION [None]
  - INFLUENZA LIKE ILLNESS [None]
  - INJECTION SITE PAIN [None]
  - LUNG ADENOCARCINOMA STAGE I [None]
  - MULTIPLE SCLEROSIS [None]
  - MULTIPLE SCLEROSIS RELAPSE [None]
  - URINARY TRACT INFECTION [None]
  - VULVOVAGINAL CANDIDIASIS [None]
